FAERS Safety Report 21198675 (Version 7)
Quarter: 2022Q4

REPORT INFORMATION
  Report Type: Spontaneous
  Country: CA (occurrence: CA)
  Receive Date: 20220811
  Receipt Date: 20221227
  Transmission Date: 20230112
  Serious: Yes (Other)
  Sender: FDA-Public Use
  Company Number: CA-CELLTRION INC.-2022CA012769

PATIENT

DRUGS (18)
  1. INFLECTRA [Suspect]
     Active Substance: INFLIXIMAB-DYYB
     Indication: Colitis ulcerative
     Dosage: 900 MG, AT WEEK 2, 6 WEEK THEN EVERY 4 WEEKS
     Route: 042
     Dates: start: 20220713
  2. INFLECTRA [Suspect]
     Active Substance: INFLIXIMAB-DYYB
     Dosage: 1 DF, WEEK 0 HOSPITAL START
     Route: 042
     Dates: start: 20220713, end: 20220713
  3. INFLECTRA [Suspect]
     Active Substance: INFLIXIMAB-DYYB
     Dosage: 900 MG, Q2,6 WEEKS, THEN EVERY 4 WEEKS (MAINTENANCE FREQUENCY EVERY 4 WEEKS )
     Route: 042
     Dates: start: 20220729
  4. INFLECTRA [Suspect]
     Active Substance: INFLIXIMAB-DYYB
     Dosage: 900 MG, Q2,6 WEEKS, THEN EVERY 4 WEEKS (MAINTENANCE FREQUENCY EVERY 4 WEEKS)
     Route: 042
     Dates: start: 20220826
  5. INFLECTRA [Suspect]
     Active Substance: INFLIXIMAB-DYYB
     Dosage: 900 MG, Q2,6 WEEKS, THEN EVERY 4 WEEKS (MAINTENANCE FREQUENCY EVERY 4 WEEKS)
     Route: 042
     Dates: start: 20220923
  6. INFLECTRA [Suspect]
     Active Substance: INFLIXIMAB-DYYB
     Dosage: 900 MG, Q2,6 WEEKS, THEN EVERY 4 WEEKS (MAINTENANCE FREQUENCY EVERY 4 WEEKS)
     Route: 042
     Dates: start: 20221021
  7. INFLECTRA [Suspect]
     Active Substance: INFLIXIMAB-DYYB
     Dosage: 900 MG, Q2,6 WEEKS, THEN EVERY 4 WEEKS (MAINTENANCE FREQUENCY EVERY 4 WEEKS)
     Route: 042
     Dates: start: 20221118
  8. INFLECTRA [Suspect]
     Active Substance: INFLIXIMAB-DYYB
     Dosage: 900 MG, Q2,6 WEEKS, THEN EVERY 4 WEEKS (MAINTENANCE FREQUENCY EVERY 4 WEEKS)
     Route: 042
     Dates: start: 20221216
  9. BUPROPION [Concomitant]
     Active Substance: BUPROPION
     Dosage: UNK
  10. CALCIUM [Concomitant]
     Active Substance: CALCIUM
     Dosage: UNK
  11. FEROMAX [SACCHARATED IRON OXIDE] [Concomitant]
     Dosage: UNK
  12. MORNIFLUMATE [Concomitant]
     Active Substance: MORNIFLUMATE
     Dosage: UNK
  13. FOLIC ACID [Concomitant]
     Active Substance: FOLIC ACID
     Dosage: UNK
  14. PREDNISONE [Concomitant]
     Active Substance: PREDNISONE
     Dosage: 50MG TO BE TAPERED OFF 5MG DAILY
  15. RAMIPRIL [Concomitant]
     Active Substance: RAMIPRIL
     Dosage: UNK
  16. REPATHA [Concomitant]
     Active Substance: EVOLOCUMAB
     Dosage: UNK
  17. VITAMIN D NOS [Concomitant]
     Active Substance: VITAMIN D NOS
     Dosage: UNK
  18. XARELTO [Concomitant]
     Active Substance: RIVAROXABAN
     Dosage: UNK

REACTIONS (13)
  - Haematochezia [Not Recovered/Not Resolved]
  - Weight increased [Not Recovered/Not Resolved]
  - Hypertension [Not Recovered/Not Resolved]
  - Vision blurred [Not Recovered/Not Resolved]
  - Condition aggravated [Unknown]
  - Poor venous access [Not Recovered/Not Resolved]
  - Condition aggravated [Recovered/Resolved]
  - Diarrhoea [Not Recovered/Not Resolved]
  - Abdominal pain [Not Recovered/Not Resolved]
  - Frequent bowel movements [Unknown]
  - Vein collapse [Not Recovered/Not Resolved]
  - Blood pressure increased [Recovered/Resolved]
  - Off label use [Unknown]

NARRATIVE: CASE EVENT DATE: 20220701
